FAERS Safety Report 5277347-2 (Version None)
Quarter: 2007Q1

REPORT INFORMATION
  Report Type: 
  Country: None (occurrence: None)
  Receive Date: 20070327
  Receipt Date: 20070323
  Transmission Date: 20070707
  Serious: Yes (Other)
  Sender: FDA-Public Use
  Company Number: HQWYE608123MAR07

PATIENT
  Age: 11 Year
  Sex: Female

DRUGS (3)
  1. PANTOPRAZOLE SODIUM [Suspect]
     Indication: GASTROINTESTINAL HAEMORRHAGE
     Dosage: 80 MG EVERY
     Route: 042
     Dates: start: 20061031, end: 20061031
  2. PANTOPRAZOLE SODIUM [Suspect]
     Dosage: ^8 MG/HOUR^
     Route: 042
     Dates: start: 20061031
  3. ONDANSETRON [Concomitant]
     Dosage: 4 MG EVERY
     Route: 042
     Dates: start: 20061001, end: 20061001

REACTIONS (2)
  - CONVULSION [None]
  - LOSS OF CONSCIOUSNESS [None]
